FAERS Safety Report 8457045-4 (Version None)
Quarter: 2012Q2

REPORT INFORMATION
  Report Type: 
  Country: None (occurrence: None)
  Receive Date: 20120621
  Receipt Date: 20120608
  Transmission Date: 20120825
  Serious: Yes (Other)
  Sender: FDA-Public Use
  Company Number: JP-MYLANLABS-2012S1011750

PATIENT
  Age: 65 Year
  Sex: Male

DRUGS (3)
  1. RIBAVIRIN [Concomitant]
     Indication: HEPATITIS C
     Dosage: 400 MG/DAY
     Route: 065
  2. INTERFERON ALFA 2B [Concomitant]
     Indication: HEPATITIS C
     Dosage: 3 MILLION UNITS THREE TIMES A WEEK
     Route: 065
  3. TACROLIMUS [Suspect]
     Indication: IMMUNOSUPPRESSANT DRUG THERAPY
     Dosage: 2.4 MG/DAY; GRADUALLY REDUCED TO 1.2 MG/DAY
     Route: 065

REACTIONS (1)
  - LUNG NEOPLASM MALIGNANT [None]
